FAERS Safety Report 9630268 (Version 2)
Quarter: 2013Q4

REPORT INFORMATION
  Report Type: Spontaneous
  Country: FR (occurrence: FR)
  Receive Date: 20131017
  Receipt Date: 20131017
  Transmission Date: 20140711
  Serious: Yes (Hospitalization, Other)
  Sender: FDA-Public Use
  Company Number: FR-PFIZER INC-2012133295

PATIENT
  Age: 77 Year
  Sex: Female

DRUGS (14)
  1. ENBREL [Suspect]
     Indication: RHEUMATOID ARTHRITIS
     Dosage: 50 MG, WEEKLY
     Route: 058
     Dates: start: 201011, end: 201204
  2. METHOTREXATE SODIUM [Suspect]
     Indication: RHEUMATOID ARTHRITIS
     Dosage: 6 DF, WEEKLY
     Route: 048
     Dates: start: 201010, end: 201204
  3. HYDROCORTISONE [Suspect]
     Indication: RHEUMATOID ARTHRITIS
     Dosage: 20 MG, 1X/DAY
     Route: 048
     Dates: start: 201010
  4. KARDEGIC [Concomitant]
  5. ENALAPRIL [Concomitant]
  6. AMLOR [Concomitant]
  7. LEVOTHYROX [Concomitant]
  8. LEDERFOLIN [Concomitant]
  9. PRAVASTATIN [Concomitant]
  10. OMEPRAZOLE [Concomitant]
  11. TARDYFERON [Concomitant]
  12. CITALOPRAM [Concomitant]
  13. DUPHALAC [Concomitant]
  14. PARACETAMOL [Concomitant]
     Indication: PAIN
     Dosage: UNK

REACTIONS (9)
  - Lung disorder [Unknown]
  - Pneumocystis jirovecii pneumonia [Unknown]
  - Immunosuppression [Unknown]
  - Inflammation [Unknown]
  - Epstein-Barr virus infection [Unknown]
  - Rheumatoid lung [Unknown]
  - Epistaxis [Unknown]
  - Asthenia [Unknown]
  - Decreased appetite [Unknown]
